FAERS Safety Report 8263965-6 (Version None)
Quarter: 2012Q2

REPORT INFORMATION
  Report Type: 
  Country: None (occurrence: None)
  Receive Date: 20120406
  Receipt Date: 20120329
  Transmission Date: 20120825
  Serious: Yes (Hospitalization)
  Sender: FDA-Public Use
  Company Number: US-BIOGENIDEC-2012BI009469

PATIENT
  Age: 60 Year
  Sex: Female

DRUGS (3)
  1. AVONEX [Suspect]
     Route: 030
     Dates: start: 20030422, end: 20051031
  2. AVONEX [Suspect]
     Indication: MULTIPLE SCLEROSIS
     Route: 030
  3. TYSABRI [Concomitant]
     Indication: MULTIPLE SCLEROSIS
     Route: 042
     Dates: end: 20111017

REACTIONS (1)
  - NO ADVERSE EVENT [None]
